FAERS Safety Report 8206932-0 (Version None)
Quarter: 2012Q1

REPORT INFORMATION
  Report Type: 
  Country: None (occurrence: None)
  Receive Date: 20120314
  Receipt Date: 20120305
  Transmission Date: 20120608
  Serious: Yes (Hospitalization)
  Sender: FDA-Public Use
  Company Number: CA-JNJFOC-20120302043

PATIENT
  Age: 82 Year
  Sex: Male
  Weight: 104 kg

DRUGS (10)
  1. ATENOLOL [Concomitant]
     Indication: CARDIAC DISORDER
  2. FOLIC ACID [Concomitant]
     Indication: RHEUMATOID ARTHRITIS
     Route: 048
     Dates: start: 19971102, end: 20110814
  3. LISINOPRIL [Concomitant]
     Indication: CARDIAC DISORDER
  4. LEFLUNOMIDE [Suspect]
     Indication: RHEUMATOID ARTHRITIS
     Route: 048
     Dates: start: 20110201, end: 20110815
  5. COUMADIN [Concomitant]
     Indication: CARDIAC DISORDER
  6. SIMPONI [Suspect]
     Indication: PRODUCT USED FOR UNKNOWN INDICATION
     Route: 058
     Dates: start: 20110511, end: 20110811
  7. METHOTREXATE [Suspect]
     Indication: RHEUMATOID ARTHRITIS
     Route: 058
     Dates: start: 19971101, end: 20110808
  8. CELEBREX [Concomitant]
     Indication: RHEUMATOID ARTHRITIS
     Route: 048
     Dates: start: 19970501
  9. ACTONEL [Concomitant]
     Indication: OSTEOPOROSIS
     Route: 048
     Dates: start: 20110614
  10. FUROSEMIDE [Concomitant]
     Indication: CARDIAC DISORDER

REACTIONS (1)
  - ABSCESS LIMB [None]
